FAERS Safety Report 8256214-6 (Version None)
Quarter: 2012Q2

REPORT INFORMATION
  Report Type: 
  Country: None (occurrence: None)
  Receive Date: 20120403
  Receipt Date: 20120317
  Transmission Date: 20120825
  Serious: Yes (Other)
  Sender: FDA-Public Use
  Company Number: NL-ROCHE-GNE263224

PATIENT
  Sex: Female
  Weight: 69.174 kg

DRUGS (2)
  1. RANIBIZUMAB [Suspect]
     Indication: AGE-RELATED MACULAR DEGENERATION
     Dosage: 0.5 MG, UNK
     Route: 050
     Dates: start: 20071023
  2. PLACEBO AND VERTEPORFIN [Suspect]
     Indication: AGE-RELATED MACULAR DEGENERATION
     Dosage: 6 MG, UNK
     Route: 042
     Dates: start: 20071023

REACTIONS (4)
  - RETINAL CYST [None]
  - RETINAL DEGENERATION [None]
  - MACULAR PSEUDOHOLE [None]
  - HYPOPERFUSION [None]
